FAERS Safety Report 7652124-3 (Version None)
Quarter: 2011Q3

REPORT INFORMATION
  Report Type: 
  Country: None (occurrence: None)
  Receive Date: 20110803
  Receipt Date: 20110727
  Transmission Date: 20111222
  Serious: Yes (Death, Life-Threatening, Hospitalization)
  Sender: FDA-Public Use
  Company Number: JP-JNJFOC-20110800082

PATIENT
  Sex: Female
  Weight: 46 kg

DRUGS (32)
  1. VITAMEDIN [Concomitant]
     Route: 042
     Dates: start: 20091116
  2. MAGMITT [Concomitant]
     Indication: CONSTIPATION
     Route: 048
  3. ARGAMATE [Concomitant]
     Indication: HYDRONEPHROSIS
     Route: 048
  4. SOLDEM 1 [Concomitant]
     Route: 042
  5. HERBAL NERVE TONIC LIQUID [Concomitant]
     Route: 048
  6. MEROPENEM [Concomitant]
     Route: 042
     Dates: start: 20091116, end: 20091116
  7. NOVO HEPARIN [Concomitant]
     Indication: DEEP VEIN THROMBOSIS
     Route: 042
  8. TPN ELECTROLYTES IN PLASTIC CONTAINER [Concomitant]
     Route: 042
     Dates: start: 20091116
  9. HACHIAZULE [Concomitant]
     Route: 049
     Dates: start: 20091123
  10. NERIPROCT [Concomitant]
     Indication: HAEMORRHOIDS
     Route: 061
  11. BIOFERMIN R [Concomitant]
     Indication: CONSTIPATION
     Route: 048
     Dates: start: 20091117, end: 20091120
  12. SODIUM CHLORIDE [Concomitant]
     Route: 042
     Dates: start: 20091117, end: 20091117
  13. DOXORUBICIN HCL [Suspect]
     Indication: OVARIAN CANCER RECURRENT
     Route: 042
     Dates: start: 20091110, end: 20091110
  14. ISOTONIC SODIUM CHLORIDE [Concomitant]
     Route: 042
  15. GLUCOSE [Concomitant]
     Route: 042
  16. DEXAMETHASONE SODIUM PHOSPHATE [Concomitant]
     Route: 042
  17. DEXAMETHASONE SODIUM PHOSPHATE [Concomitant]
     Route: 042
  18. MAC-AMIN [Concomitant]
     Route: 042
     Dates: start: 20091116
  19. MEROPENEM [Concomitant]
     Route: 042
     Dates: start: 20091117, end: 20091124
  20. KAKKON-TO [Concomitant]
     Route: 048
     Dates: start: 20091116, end: 20091116
  21. WARFARIN SODIUM [Concomitant]
     Indication: DEEP VEIN THROMBOSIS
     Route: 048
     Dates: start: 20091112
  22. HERBAL PREPARATION [Concomitant]
     Route: 048
     Dates: start: 20091117, end: 20091118
  23. DOXORUBICIN HCL [Suspect]
     Route: 042
     Dates: start: 20091209, end: 20091209
  24. PRIMPERAN TAB [Concomitant]
     Route: 042
     Dates: start: 20091116
  25. SENNOSIDE [Concomitant]
     Indication: CONSTIPATION
     Route: 048
     Dates: start: 20091027
  26. FENTANYL CITRATE [Concomitant]
     Route: 062
  27. FUNGIZONE [Concomitant]
     Route: 042
     Dates: start: 20091116, end: 20091119
  28. OXINORM [Concomitant]
     Route: 048
     Dates: start: 20091126
  29. KALIMATE [Concomitant]
     Route: 048
     Dates: start: 20091126
  30. PHYSIOSOL [Concomitant]
     Route: 042
     Dates: start: 20091116
  31. KYTRIL [Concomitant]
     Route: 042
  32. NAPROXEN [Concomitant]
     Route: 048
     Dates: start: 20091122

REACTIONS (4)
  - URINARY TRACT INFECTION [None]
  - INTESTINAL OBSTRUCTION [None]
  - OVARIAN CANCER RECURRENT [None]
  - ANAEMIA [None]
